FAERS Safety Report 8826264 (Version 1)
Quarter: 2012Q4

REPORT INFORMATION
  Report Type: 
  Country: NL (occurrence: NL)
  Receive Date: 20121005
  Receipt Date: 20121005
  Transmission Date: 20130627
  Serious: Yes (Hospitalization)
  Sender: FDA-Public Use
  Company Number: NL-PFIZER INC-2012244920

PATIENT
  Sex: Female
  Weight: 104.6 kg

DRUGS (16)
  1. GENOTROPIN [Suspect]
     Indication: HYPOPITUITARISM
     Dosage: 1.4 mg, 7/wk
     Route: 058
     Dates: start: 20050113
  2. DEPAKINE [Concomitant]
     Indication: EPILEPSY
     Dosage: UNK
     Dates: start: 19791001
  3. DEPAKINE [Concomitant]
     Indication: CONVULSION
  4. DEPAKINE [Concomitant]
     Indication: CONVULSION
  5. PREMARIN TABLET [Concomitant]
     Indication: BLOOD LUTEINISING HORMONE DECREASED
     Dosage: UNK
     Dates: start: 19841001
  6. PREMARIN TABLET [Concomitant]
     Indication: BLOOD FOLLICLE STIMULATING HORMONE DECREASED
  7. PREMARIN TABLET [Concomitant]
     Indication: HYPOGONADISM FEMALE
  8. DEXAMETHASONE [Concomitant]
     Indication: BLOOD CORTICOTROPHIN DECREASED
     Dosage: UNK
     Dates: start: 19891001
  9. IMODIUM [Concomitant]
     Indication: COLITIS
     Dosage: UNK
     Dates: start: 19971205
  10. IMODIUM [Concomitant]
     Indication: ENTERITIS
  11. IMODIUM [Concomitant]
     Indication: GASTROENTERITIS
  12. THYROX [Concomitant]
     Indication: BLOOD THYROID STIMULATING HORMONE DECREASED
     Dosage: UNK
     Dates: start: 20040708
  13. THYROX [Concomitant]
     Indication: PRIMARY HYPOTHYROIDISM
  14. TEGRETOL [Concomitant]
     Indication: EPILEPSY
     Dosage: UNK
     Dates: start: 19901001
  15. TEGRETOL [Concomitant]
     Indication: CONVULSION
  16. TEGRETOL [Concomitant]
     Indication: CONVULSION

REACTIONS (1)
  - Epilepsy [Unknown]
